FAERS Safety Report 25066944 (Version 2)
Quarter: 2025Q4

REPORT INFORMATION
  Report Type: Spontaneous
  Country: US (occurrence: US)
  Receive Date: 20250312
  Receipt Date: 20251029
  Transmission Date: 20260117
  Serious: No
  Sender: CELLTRION
  Company Number: US-CELLTRION INC.-2025US000433

PATIENT

DRUGS (1)
  1. ZYMFENTRA [Suspect]
     Active Substance: INFLIXIMAB-DYYB
     Indication: Crohn^s disease
     Dosage: 120 MG/ML - INJECT THE CONTENTS OF ONE DEVICE UNDER THE SKIN EVERY TWO WEEK
     Route: 058

REACTIONS (3)
  - Symptom recurrence [Unknown]
  - Product distribution issue [Unknown]
  - Therapy interrupted [Unknown]
